FAERS Safety Report 6407791-9 (Version None)
Quarter: 2009Q4

REPORT INFORMATION
  Report Type: 
  Country: None (occurrence: None)
  Receive Date: 20091020
  Receipt Date: 20091009
  Transmission Date: 20100525
  Serious: Yes (Hospitalization, Other)
  Sender: FDA-Public Use
  Company Number: BR-ELI_LILLY_AND_COMPANY-BR200908005936

PATIENT
  Sex: Female

DRUGS (5)
  1. FORTEO [Suspect]
     Indication: OSTEOPOROSIS
     Dosage: 20 UG, DAILY (1/D)
     Route: 058
  2. DIOVAN [Concomitant]
     Indication: HYPERTENSION
     Dosage: UNK, UNKNOWN
     Route: 065
  3. BETAHISTINE [Concomitant]
     Indication: INNER EAR DISORDER
     Dosage: UNK, UNKNOWN
     Route: 065
  4. CALCIUM [Concomitant]
     Indication: SUPPLEMENTATION THERAPY
     Dosage: UNK, UNKNOWN
     Route: 065
  5. PROPRANOLOL [Concomitant]
     Indication: HYPERTENSION
     Dosage: UNK, UNKNOWN
     Route: 065

REACTIONS (5)
  - HALLUCINATION [None]
  - HYPERCALCAEMIA [None]
  - INTENTIONAL DRUG MISUSE [None]
  - LETHARGY [None]
  - MEMORY IMPAIRMENT [None]
